FAERS Safety Report 8834854 (Version 1)
Quarter: 2012Q4

REPORT INFORMATION
  Report Type: Spontaneous
  Country: GB (occurrence: None)
  Receive Date: 20121009
  Receipt Date: 20121009
  Transmission Date: 20130627
  Serious: Yes (Other)
  Sender: FDA-Public Use
  Company Number: GB-BANPHARM-20120192

PATIENT

DRUGS (6)
  1. IBUPROFEN [Suspect]
     Route: 048
     Dates: start: 20090101, end: 20120901
  2. OMEPRAZOLE SODIUM [Suspect]
     Route: 048
     Dates: start: 20090101, end: 20120901
  3. AMLODIPINE [Concomitant]
  4. ASPIRIN [Concomitant]
  5. ATORVASTATIN [Concomitant]
  6. FELODIPINE [Concomitant]

REACTIONS (3)
  - Haematuria [None]
  - Renal impairment [None]
  - Tubulointerstitial nephritis [None]
